FAERS Safety Report 8248479-1 (Version None)
Quarter: 2012Q1

REPORT INFORMATION
  Report Type: 
  Country: None (occurrence: None)
  Receive Date: 20120330
  Receipt Date: 20120322
  Transmission Date: 20120608
  Serious: Yes (Hospitalization)
  Sender: FDA-Public Use
  Company Number: CG-MERCK-1203USA03405

PATIENT
  Age: 32 Year
  Sex: Male
  Weight: 72 kg

DRUGS (1)
  1. STROMECTOL [Suspect]
     Indication: ONCHOCERCIASIS
     Route: 048
     Dates: start: 20111219, end: 20111219

REACTIONS (6)
  - MALARIA [None]
  - GAIT DISTURBANCE [None]
  - PYREXIA [None]
  - HYPOTENSION [None]
  - ASTHENIA [None]
  - BACK PAIN [None]
